FAERS Safety Report 16684188 (Version 2)
Quarter: 2020Q1

REPORT INFORMATION
  Report Type: Spontaneous
  Country: GB (occurrence: GB)
  Receive Date: 20190808
  Receipt Date: 20200310
  Transmission Date: 20200409
  Serious: Yes (Other)
  Sender: FDA-Public Use
  Company Number: GB-009507513-1908GBR002064

PATIENT
  Age: 20 Year
  Sex: Female
  Weight: 120 kg

DRUGS (1)
  1. NEXPLANON [Suspect]
     Active Substance: ETONOGESTREL
     Indication: CONTRACEPTION
     Dosage: 68 MILLIGRAM
     Route: 058
     Dates: start: 20180828, end: 20190701

REACTIONS (3)
  - Maternal exposure during pregnancy [Unknown]
  - Pregnancy with implant contraceptive [Unknown]
  - Abortion spontaneous [Unknown]
